FAERS Safety Report 19232667 (Version 1)
Quarter: 2021Q2

REPORT INFORMATION
  Report Type: Spontaneous
  Country: GB (occurrence: GB)
  Receive Date: 20210507
  Receipt Date: 20210507
  Transmission Date: 20210717
  Serious: Yes (Other)
  Sender: FDA-Public Use
  Company Number: GB-HIKMA PHARMACEUTICALS USA INC.-GB-H14001-21-54231

PATIENT
  Age: 68 Year
  Sex: Male
  Weight: 106 kg

DRUGS (5)
  1. ACICLOVIR [Suspect]
     Active Substance: ACYCLOVIR
     Dosage: UNKNOWN
     Route: 065
  2. ACICLOVIR [Suspect]
     Active Substance: ACYCLOVIR
     Indication: PRODUCT USED FOR UNKNOWN INDICATION
     Dosage: UNKNOWN
     Route: 065
  3. PENICILLIN [Suspect]
     Active Substance: PENICILLIN
     Indication: PRODUCT USED FOR UNKNOWN INDICATION
     Dosage: UNKNOWN
     Route: 065
  4. BETNOVATE [Suspect]
     Active Substance: BETAMETHASONE
     Indication: FOLLICULITIS
     Dosage: UNKNOWN
     Route: 065
  5. ASTRAZENECA COVID?19 VACCINE [Suspect]
     Active Substance: AZD-1222
     Indication: COVID-19 IMMUNISATION
     Dosage: DOSE 1
     Route: 065
     Dates: start: 20210210

REACTIONS (7)
  - Rash [Unknown]
  - Dermatitis [Unknown]
  - Headache [Unknown]
  - Folliculitis [Recovering/Resolving]
  - Herpes zoster [Not Recovered/Not Resolved]
  - Blister [Recovering/Resolving]
  - Pain [Unknown]

NARRATIVE: CASE EVENT DATE: 20210222
